FAERS Safety Report 6850252-3 (Version None)
Quarter: 2010Q3

REPORT INFORMATION
  Report Type: 
  Country: None (occurrence: None)
  Receive Date: 20100716
  Receipt Date: 20071017
  Transmission Date: 20110219
  Serious: No
  Sender: FDA-Public Use
  Company Number: US-PFIZER INC-2007087109

PATIENT
  Sex: Female
  Weight: 50 kg

DRUGS (10)
  1. CHANTIX [Suspect]
     Indication: SMOKING CESSATION THERAPY
     Dates: start: 20070901
  2. COMBIVENT [Concomitant]
  3. TILADE INHALER [Concomitant]
     Route: 055
  4. NEXIUM [Concomitant]
  5. ALPRAZOLAM [Concomitant]
     Indication: ANXIETY
  6. PREMARIN [Concomitant]
  7. METOCLOPRAMIDE [Concomitant]
  8. MONTELUKAST SODIUM [Concomitant]
  9. CYMBALTA [Concomitant]
  10. ALLEGRA [Concomitant]

REACTIONS (1)
  - INSOMNIA [None]
